FAERS Safety Report 7513395-7 (Version None)
Quarter: 2011Q2

REPORT INFORMATION
  Report Type: 
  Country: None (occurrence: None)
  Receive Date: 20110531
  Receipt Date: 20110517
  Transmission Date: 20111010
  Serious: Yes (Disabling, Other)
  Sender: FDA-Public Use
  Company Number: FR-UCBSA-025651

PATIENT
  Age: 65 Year
  Sex: Female
  Weight: 76 kg

DRUGS (11)
  1. PREDNISONE [Concomitant]
     Indication: RHEUMATOID ARTHRITIS
     Dosage: 5MG; 1-0-0
  2. CRESTOR [Concomitant]
     Dosage: 5MG;0-0-1
  3. ACTONEL [Concomitant]
     Dosage: 30MG; 1-0-0
  4. CIMZIA [Suspect]
     Indication: RHEUMATOID ARTHRITIS
     Route: 058
     Dates: start: 20101201
  5. TENORDATE [Concomitant]
     Indication: HYPERTENSION
     Dosage: 1-0-0
  6. LEVOTHYROXINE SODIUM [Concomitant]
     Indication: HYPOTHYROIDISM
     Dosage: 25MCG; 1-0-0
  7. POTASSIUM CHLORIDE [Concomitant]
     Dosage: 1000MG; 1
  8. MODURETIC 5-50 [Concomitant]
     Indication: HYPERTENSION
     Dosage: 5MG/50MG; 1-0-0
  9. FOLIC ACID [Concomitant]
     Dosage: 5MG; 1-0-0
  10. OROCAL D3 [Concomitant]
     Dosage: 1-0-0
  11. METHOTREXATE SODIUM [Concomitant]
     Dosage: 20MG; 1-0-0

REACTIONS (3)
  - APHASIA [None]
  - ARRHYTHMIA [None]
  - CEREBROVASCULAR ACCIDENT [None]
